FAERS Safety Report 20510900 (Version 2)
Quarter: 2022Q1

REPORT INFORMATION
  Report Type: Spontaneous
  Country: US (occurrence: US)
  Receive Date: 20220224
  Receipt Date: 20220322
  Transmission Date: 20220423
  Serious: No
  Sender: FDA-Public Use
  Company Number: US-PFIZER INC-202200165778

PATIENT
  Age: 68 Year
  Sex: Male
  Weight: 77.11 kg

DRUGS (3)
  1. GENOTROPIN [Suspect]
     Active Substance: SOMATROPIN
     Dosage: 4 CLICKS INJECTED NIGHTLY
  2. TESTOSTERONE [Concomitant]
     Active Substance: TESTOSTERONE
     Dosage: PUMP OUT 4 PUMPS 1.62% GEL DAILY AND APPLY TO SKIN IN AM, STARTED 4-5 MONTHS AFTER 05SEP1986
     Dates: start: 1987
  3. METHADONE [Concomitant]
     Active Substance: METHADONE HYDROCHLORIDE
     Indication: Pain
     Dosage: 10 MG (TAKE UP TO 7 PER DAY, TAKING FOR 25 TO 30 YEARS)

REACTIONS (7)
  - Wrong technique in device usage process [Unknown]
  - Device use issue [Unknown]
  - Drug dose omission by device [Unknown]
  - Incorrect dose administered by device [Unknown]
  - Device delivery system issue [Unknown]
  - Device leakage [Unknown]
  - Device breakage [Unknown]

NARRATIVE: CASE EVENT DATE: 20220101
